FAERS Safety Report 7609844-6 (Version None)
Quarter: 2011Q3

REPORT INFORMATION
  Report Type: 
  Country: None (occurrence: None)
  Receive Date: 20110714
  Receipt Date: 20110701
  Transmission Date: 20111222
  Serious: Yes (Other)
  Sender: FDA-Public Use
  Company Number: US-ENDO PHARMACEUTICALS INC.-ENDC20110050

PATIENT
  Sex: Male
  Weight: 72.64 kg

DRUGS (1)
  1. ENDOCET 10MG/325MG [Suspect]
     Indication: TOOTHACHE
     Dosage: 30/975 MG
     Route: 048
     Dates: start: 20110601, end: 20110601

REACTIONS (2)
  - LOSS OF CONSCIOUSNESS [None]
  - CONVULSION [None]
